FAERS Safety Report 9099010 (Version 1)
Quarter: 2013Q1

REPORT INFORMATION
  Report Type: Spontaneous
  Country: IN (occurrence: IN)
  Receive Date: 20130214
  Receipt Date: 20130214
  Transmission Date: 20140127
  Serious: Yes (Other)
  Sender: FDA-Public Use
  Company Number: PHHY2013IN012341

PATIENT
  Age: 10 Year
  Sex: Male

DRUGS (1)
  1. PREDNISOLONE [Suspect]
     Indication: NEPHROTIC SYNDROME

REACTIONS (7)
  - Toxicity to various agents [Unknown]
  - Alopecia [Unknown]
  - Cataract subcapsular [Unknown]
  - Growth retardation [Unknown]
  - Body fat disorder [Unknown]
  - Hypertension [Unknown]
  - Fungal infection [Unknown]
